FAERS Safety Report 7504263-5 (Version None)
Quarter: 2011Q2

REPORT INFORMATION
  Report Type: 
  Country: None (occurrence: None)
  Receive Date: 20110401
  Receipt Date: 20110119
  Transmission Date: 20111010
  Serious: No
  Sender: FDA-Public Use
  Company Number: US-004647

PATIENT

DRUGS (1)
  1. FIRMAGON [Suspect]
     Indication: PRODUCT USED FOR UNKNOWN INDICATION
     Dosage: 240 MG 1X SUBCUTANEOUS, 80 MG 1X/MONTH SUBCUTANEOUS
     Route: 058

REACTIONS (2)
  - PROSTATIC SPECIFIC ANTIGEN INCREASED [None]
  - BLOOD TESTOSTERONE INCREASED [None]
